FAERS Safety Report 14526137 (Version 4)
Quarter: 2018Q3

REPORT INFORMATION
  Report Type: Report from Study
  Country: CA (occurrence: CA)
  Receive Date: 20180213
  Receipt Date: 20180720
  Transmission Date: 20181010
  Serious: No
  Sender: FDA-Public Use
  Company Number: CA-ROCHE-2070796

PATIENT
  Age: 46 Year
  Sex: Male
  Weight: 92.1 kg

DRUGS (1)
  1. OCREVUS [Suspect]
     Active Substance: OCRELIZUMAB
     Indication: RELAPSING-REMITTING MULTIPLE SCLEROSIS
     Dosage: 300 MG DAY 0 AND DAY 14, 600 MG EVERY  6 MONTHS
     Route: 042
     Dates: start: 20180124

REACTIONS (3)
  - Nasopharyngitis [Recovering/Resolving]
  - Nasopharyngitis [Not Recovered/Not Resolved]
  - Sinusitis [Recovered/Resolved]

NARRATIVE: CASE EVENT DATE: 20180127
